FAERS Safety Report 6509900-X (Version None)
Quarter: 2009Q4

REPORT INFORMATION
  Report Type: 
  Country: None (occurrence: None)
  Receive Date: 20091222
  Receipt Date: 20091211
  Transmission Date: 20100525
  Serious: Yes (Other)
  Sender: FDA-Public Use
  Company Number: PHHY2009JP50612

PATIENT
  Sex: Male

DRUGS (3)
  1. ZOMETA [Suspect]
     Indication: METASTASES TO BONE
     Dosage: UNK
     Route: 042
     Dates: start: 20081117, end: 20090612
  2. DECADRON                                /CAN/ [Concomitant]
  3. TAXOTERE [Concomitant]
     Indication: PROSTATE CANCER METASTATIC
     Dosage: UNK
     Dates: start: 20090522, end: 20090612

REACTIONS (6)
  - DECREASED APPETITE [None]
  - IMPAIRED HEALING [None]
  - MALAISE [None]
  - OSTEOMYELITIS [None]
  - PERIODONTITIS [None]
  - TOOTH EXTRACTION [None]
